FAERS Safety Report 10679701 (Version 1)
Quarter: 2014Q4

REPORT INFORMATION
  Report Type: Spontaneous
  Country: FR (occurrence: FR)
  Receive Date: 20141229
  Receipt Date: 20141229
  Transmission Date: 20150529
  Serious: Yes (Hospitalization, Other)
  Sender: FDA-Public Use
  Company Number: FR-TEVA-530967ISR

PATIENT
  Sex: Female

DRUGS (1)
  1. COPAXONE [Suspect]
     Active Substance: GLATIRAMER ACETATE
     Route: 058
     Dates: start: 2006

REACTIONS (7)
  - Neck pain [Unknown]
  - Pneumonia [Unknown]
  - Injection site pain [Unknown]
  - Injection site mass [Recovered/Resolved]
  - Pyrexia [Unknown]
  - Respiratory failure [Unknown]
  - Cerebrovascular accident [Unknown]
